FAERS Safety Report 22587551 (Version 5)
Quarter: 2024Q2

REPORT INFORMATION
  Report Type: Report from Study
  Country: US (occurrence: US)
  Receive Date: 20230612
  Receipt Date: 20240625
  Transmission Date: 20240716
  Serious: Yes (Hospitalization, Other)
  Sender: FDA-Public Use
  Company Number: US-ACADIA PHARMACEUTICALS INC.-ACA-2023-PIM-001946

PATIENT
  Age: 78 Year
  Sex: Male
  Weight: 76.19 kg

DRUGS (21)
  1. NUPLAZID [Suspect]
     Active Substance: PIMAVANSERIN TARTRATE
     Indication: Parkinson^s disease psychosis
     Dosage: 34 MILLIGRAM, QD
     Route: 048
     Dates: start: 20230417
  2. NUPLAZID [Suspect]
     Active Substance: PIMAVANSERIN TARTRATE
     Indication: Parkinson^s disease
     Dosage: 34 MILLIGRAM, QD
     Route: 048
     Dates: start: 20230418, end: 20240609
  3. NUPLAZID [Suspect]
     Active Substance: PIMAVANSERIN TARTRATE
     Indication: Hallucination
  4. RAMIPRIL [Concomitant]
     Active Substance: RAMIPRIL
     Dosage: 5 MILLIGRAM, QD
     Route: 048
  5. TERAZOSIN [Concomitant]
     Active Substance: TERAZOSIN HYDROCHLORIDE
     Dosage: 2 MILLIGRAM, QD
     Route: 048
  6. TERAZOSIN [Concomitant]
     Active Substance: TERAZOSIN HYDROCHLORIDE
     Dosage: 5 MG
  7. RIVASTIGMINE [Concomitant]
     Active Substance: RIVASTIGMINE
     Dosage: 6 MILLIGRAM, BID
     Route: 048
  8. VITAMIN D3 [Concomitant]
     Active Substance: CHOLECALCIFEROL
     Dosage: 10000UNITS DAILY
     Route: 048
  9. VILAZODONE [Concomitant]
     Active Substance: VILAZODONE
     Dosage: 40 MILLIGRAM, QD
     Route: 048
  10. IRON [Concomitant]
     Active Substance: IRON
     Dosage: 325 MILLIGRAM, QD
     Route: 048
  11. IRON [Concomitant]
     Active Substance: IRON
     Dosage: 45 MG
  12. CARBIDOPA\LEVODOPA [Concomitant]
     Active Substance: CARBIDOPA\LEVODOPA
     Dosage: 25/100 MG
  13. DUOPA [Concomitant]
     Active Substance: CARBIDOPA\LEVODOPA
     Dosage: 4.63MG-20MG/ML (200ML EVERY DAY PER PEG-J)
  14. RYTARY [Concomitant]
     Active Substance: CARBIDOPA\LEVODOPA
     Dosage: 61.25MG-245MG (AT BED TIME)
     Route: 048
  15. VITAMINS [Concomitant]
     Active Substance: VITAMINS
  16. AMOXICILLIN [Concomitant]
     Active Substance: AMOXICILLIN
     Dosage: 500 MILLIGRAM (4 CAPSULE BY MOUTH ONE HOUR BEFORE DETAL APPOINTMENT)
     Route: 048
  17. VITAMIN B12 [Concomitant]
     Active Substance: CYANOCOBALAMIN
     Dosage: 1000UNITS ONCE DAILY
  18. VITAMIN B12 [Concomitant]
     Active Substance: CYANOCOBALAMIN
     Dosage: 5000 MCG
  19. VITAMIN C [Concomitant]
     Active Substance: ASCORBIC ACID
     Dosage: 500 MILLIGRAM
     Route: 048
  20. CLONAZEPAM [Concomitant]
     Active Substance: CLONAZEPAM
     Dosage: 0.5 MG
  21. ALBUTEROL [Concomitant]
     Active Substance: ALBUTEROL

REACTIONS (8)
  - Urinary tract infection [Recovered/Resolved]
  - Fluid retention [Recovered/Resolved]
  - Adverse drug reaction [Not Recovered/Not Resolved]
  - Parkinson^s disease [Not Recovered/Not Resolved]
  - Fine motor skill dysfunction [Not Recovered/Not Resolved]
  - Dysgraphia [Unknown]
  - Thinking abnormal [Unknown]
  - Hallucination [Not Recovered/Not Resolved]

NARRATIVE: CASE EVENT DATE: 20231225
